FAERS Safety Report 25155133 (Version 1)
Quarter: 2025Q2

REPORT INFORMATION
  Report Type: Spontaneous
  Country: US (occurrence: None)
  Receive Date: 20250402
  Receipt Date: 20250402
  Transmission Date: 20250716
  Serious: Yes (unspecified)
  Sender: FDA-CTU
  Company Number: None

PATIENT
  Age: 53 Year
  Sex: Female

DRUGS (2)
  1. HUMIRA [Suspect]
     Active Substance: ADALIMUMAB
  2. AMJEVITA [Suspect]
     Active Substance: ADALIMUMAB-ATTO

REACTIONS (3)
  - Product substitution [None]
  - Lipoma [None]
  - Benign neoplasm of thyroid gland [None]
